FAERS Safety Report 12299370 (Version 1)
Quarter: 2016Q2

REPORT INFORMATION
  Report Type: Spontaneous
  Country: US (occurrence: None)
  Receive Date: 20160422
  Receipt Date: 20160422
  Transmission Date: 20160815
  Serious: Yes (Disabling)
  Sender: FDA-Public Use
  Company Number: None

PATIENT
  Age: 65 Year
  Sex: Female
  Weight: 90.72 kg

DRUGS (8)
  1. TURMERIC [Concomitant]
     Active Substance: TURMERIC
  2. CINNAMON. [Concomitant]
     Active Substance: CINNAMON
  3. AVELOX [Suspect]
     Active Substance: MOXIFLOXACIN HYDROCHLORIDE
     Indication: COUGH
     Dosage: INTO A VEIN
     Dates: start: 20070704, end: 20070709
  4. MAGNESIUM [Concomitant]
     Active Substance: MAGNESIUM
  5. UBIQUINOL [Concomitant]
     Active Substance: UBIQUINOL
  6. ALPHA LIPOIC ACID [Concomitant]
     Active Substance: .ALPHA.-LIPOIC ACID
  7. METFORMIN [Concomitant]
     Active Substance: METFORMIN HYDROCHLORIDE
  8. VITAMINS [Concomitant]
     Active Substance: VITAMINS

REACTIONS (10)
  - Headache [None]
  - Muscle disorder [None]
  - Hallucination, auditory [None]
  - Walking aid user [None]
  - Rash [None]
  - Abdominal discomfort [None]
  - Vomiting [None]
  - Abasia [None]
  - Insomnia [None]
  - Muscle injury [None]

NARRATIVE: CASE EVENT DATE: 20070704
